FAERS Safety Report 11059481 (Version 1)
Quarter: 2015Q2

REPORT INFORMATION
  Report Type: Spontaneous
  Country: FR (occurrence: FR)
  Receive Date: 20150423
  Receipt Date: 20150423
  Transmission Date: 20150821
  Serious: Yes (Other)
  Sender: FDA-Public Use
  Company Number: FR-PFIZER INC-2015132138

PATIENT
  Age: 56 Year
  Sex: Male

DRUGS (3)
  1. TARGOCID [Suspect]
     Active Substance: TEICOPLANIN
     Dosage: 600 MG, 1X/DAY
     Route: 041
     Dates: start: 20150319, end: 20150323
  2. DALACINE [Suspect]
     Active Substance: CLINDAMYCIN HYDROCHLORIDE
     Indication: SPINAL PAIN
     Dosage: 600 MG, 3X/DAY
     Route: 048
     Dates: start: 20150318, end: 20150323
  3. TARGOCID [Suspect]
     Active Substance: TEICOPLANIN
     Indication: SPINAL PAIN
     Dosage: 400 MG, 2X/DAY
     Route: 041
     Dates: start: 20150318, end: 20150318

REACTIONS (1)
  - Cholestasis [Recovering/Resolving]

NARRATIVE: CASE EVENT DATE: 20150319
